FAERS Safety Report 18829967 (Version 1)
Quarter: 2021Q1

REPORT INFORMATION
  Report Type: Spontaneous
  Country: US (occurrence: US)
  Receive Date: 20210201
  Receipt Date: 20210201
  Transmission Date: 20210419
  Serious: No
  Sender: FDA-Public Use
  Company Number: US-ABBVIE-20K-163-3624863-00

PATIENT
  Age: 40 Year
  Sex: Female

DRUGS (3)
  1. HUMIRA [Suspect]
     Active Substance: ADALIMUMAB
     Indication: NEUROSARCOIDOSIS
  2. HUMIRA [Suspect]
     Active Substance: ADALIMUMAB
     Indication: HEADACHE
     Route: 058
     Dates: start: 202007
  3. HUMIRA [Suspect]
     Active Substance: ADALIMUMAB
     Indication: MIGRAINE

REACTIONS (3)
  - Wrong technique in product usage process [Recovered/Resolved]
  - Device issue [Recovered/Resolved]
  - Off label use [Not Recovered/Not Resolved]

NARRATIVE: CASE EVENT DATE: 202007
